FAERS Safety Report 7284185-8 (Version None)
Quarter: 2011Q1

REPORT INFORMATION
  Report Type: 
  Country: None (occurrence: None)
  Receive Date: 20110209
  Receipt Date: 20110125
  Transmission Date: 20110831
  Serious: Yes (Other)
  Sender: FDA-Public Use
  Company Number: GB-JNJFOC-20110107539

PATIENT

DRUGS (2)
  1. MERCAPTOPURINE [Concomitant]
  2. INFLIXIMAB, RECOMBINANT [Suspect]
     Indication: GRANULOMA
     Route: 042

REACTIONS (2)
  - SURGERY [None]
  - DRUG INEFFECTIVE [None]
